FAERS Safety Report 9232621 (Version 2)
Quarter: 2013Q2

REPORT INFORMATION
  Report Type: Spontaneous
  Country: US (occurrence: None)
  Receive Date: 20130412
  Receipt Date: 20130429
  Transmission Date: 20140414
  Serious: Yes (Death, Hospitalization, Other)
  Sender: FDA-Public Use
  Company Number: ADR-2013-00628

PATIENT
  Age: 52 Year
  Sex: Female

DRUGS (3)
  1. BACLOFEN [Suspect]
     Indication: PAIN
  2. MORPHINE [Concomitant]
  3. BUPIVACAINE INTRATHECAL [Concomitant]

REACTIONS (5)
  - Overdose [None]
  - Fatigue [None]
  - Lethargy [None]
  - Refusal of treatment by patient [None]
  - No therapeutic response [None]
